FAERS Safety Report 5706427-X (Version None)
Quarter: 2008Q2

REPORT INFORMATION
  Report Type: 
  Country: None (occurrence: None)
  Receive Date: 20080411
  Receipt Date: 20080331
  Transmission Date: 20081010
  Serious: Yes (Life-Threatening)
  Sender: FDA-Public Use
  Company Number: DSM-2008-00325

PATIENT
  Age: 67 Year
  Sex: Female

DRUGS (5)
  1. OLMESARTAN MEDOXOMIL [Suspect]
     Indication: HYPERTENSION
     Dosage: 20 MG (20 MG, 1 IN 1 D), ORAL
     Route: 048
     Dates: start: 20080121, end: 20080207
  2. ATENOLOL (ATENOLOL)(25 MILLIGRAM)(ATENOLOL) [Concomitant]
  3. EZETIMIBE [Concomitant]
  4. INDAPAMIDE (INDAPAMIDE) (2.5 MILLIGRAM)(INDAPAMIDE) [Concomitant]
  5. SIMVASTATIN [Concomitant]

REACTIONS (4)
  - ASTHENIA [None]
  - DEPRESSION [None]
  - DIZZINESS [None]
  - SUICIDAL IDEATION [None]
